FAERS Safety Report 15577727 (Version 1)
Quarter: 2018Q4

REPORT INFORMATION
  Report Type: Spontaneous
  Country: US (occurrence: US)
  Receive Date: 20181029
  Receipt Date: 20181029
  Transmission Date: 20190205
  Serious: No
  Sender: FDA-Public Use
  Company Number: None

PATIENT
  Age: 74 Year
  Sex: Female

DRUGS (2)
  1. TRAZODONE [Concomitant]
     Active Substance: TRAZODONE HYDROCHLORIDE
  2. DALFAMPRIDINE 10MG ER TAB [Suspect]
     Active Substance: DALFAMPRIDINE
     Route: 048
     Dates: start: 201810

REACTIONS (6)
  - Dizziness [None]
  - Insomnia [None]
  - Dry mouth [None]
  - Heart rate increased [None]
  - Dyspnoea [None]
  - Vision blurred [None]

NARRATIVE: CASE EVENT DATE: 20181025
